FAERS Safety Report 5116982-9 (Version None)
Quarter: 2006Q3

REPORT INFORMATION
  Report Type: 
  Country: None (occurrence: None)
  Receive Date: 20060928
  Receipt Date: 20050406
  Transmission Date: 20061208
  Serious: Yes (Hospitalization, Disabling)
  Sender: FDA-Public Use
  Company Number: FR-MERCK-0504FRA00034

PATIENT
  Age: 58 Year
  Sex: Female

DRUGS (1)
  1. ZOCOR [Suspect]
     Indication: HYPERCHOLESTEROLAEMIA
     Route: 048
     Dates: start: 20000101, end: 20050405

REACTIONS (2)
  - NEURALGIC AMYOTROPHY [None]
  - NEUROPATHY PERIPHERAL [None]
